FAERS Safety Report 7312623-0 (Version None)
Quarter: 2011Q1

REPORT INFORMATION
  Report Type: 
  Country: None (occurrence: None)
  Receive Date: 20110214
  Receipt Date: 20110207
  Transmission Date: 20110831
  Serious: Yes (Hospitalization)
  Sender: FDA-Public Use
  Company Number: 1000012980

PATIENT
  Age: 78 Year
  Sex: Female

DRUGS (17)
  1. CYMBALTA [Concomitant]
  2. CALCIUM [Concomitant]
  3. PENICILLIN [Concomitant]
  4. PRAVACHOL [Concomitant]
  5. PRILOSEC [Concomitant]
  6. VITAMIN B [Concomitant]
  7. NEBIVOLOL (NEBIVOLOL HYDROCHLORIDE) [Suspect]
     Dates: start: 20100301
  8. METFORMIN [Concomitant]
  9. VITAMIN D [Concomitant]
  10. WARFARIN SODIUM [Suspect]
     Indication: THROMBOSIS PROPHYLAXIS
     Dosage: 21 MG (21 MG,1 IN 1 WK),ORAL
     Route: 048
     Dates: start: 20100310, end: 20100310
  11. LASIX [Concomitant]
  12. VERAPAMIL [Concomitant]
  13. FISH OIL [Concomitant]
  14. LISINOPRIL [Concomitant]
  15. TRAMADOL [Concomitant]
  16. DOCOSAHEXAENOIC ACID [Concomitant]
  17. SYNTHROID [Concomitant]

REACTIONS (24)
  - ASPARTATE AMINOTRANSFERASE INCREASED [None]
  - DIARRHOEA [None]
  - BLOOD UREA INCREASED [None]
  - ATRIAL FIBRILLATION [None]
  - BLOOD GLUCOSE INCREASED [None]
  - CARBON DIOXIDE DECREASED [None]
  - ALANINE AMINOTRANSFERASE INCREASED [None]
  - CARDIAC ARREST [None]
  - WHITE BLOOD CELL COUNT INCREASED [None]
  - BLOOD CREATININE INCREASED [None]
  - NEUTROPHIL PERCENTAGE INCREASED [None]
  - BRADYCARDIA [None]
  - PRESYNCOPE [None]
  - HYPOPHAGIA [None]
  - DRUG INTERACTION [None]
  - INCORRECT DOSE ADMINISTERED [None]
  - MALAISE [None]
  - TACHYPNOEA [None]
  - BLOOD PRESSURE SYSTOLIC DECREASED [None]
  - ELECTROCARDIOGRAM QT PROLONGED [None]
  - SHIFT TO THE LEFT [None]
  - BLOOD POTASSIUM INCREASED [None]
  - BLOOD GLUCOSE DECREASED [None]
  - BLOOD SODIUM DECREASED [None]
